FAERS Safety Report 4444127-7 (Version None)
Quarter: 2004Q3

REPORT INFORMATION
  Report Type: 
  Country: None (occurrence: None)
  Receive Date: 20040812
  Receipt Date: 20040622
  Transmission Date: 20050211
  Serious: Yes (Hospitalization, Disabling, Other)
  Sender: FDA-Public Use
  Company Number: US97014300A

PATIENT
  Age: 51 Year
  Sex: Male
  Weight: 70 kg

DRUGS (13)
  1. HUMALOG [Suspect]
     Indication: DIABETES MELLITUS
     Dosage: 20 U/DAY
     Dates: start: 19960101
  2. HUMULIN L [Suspect]
     Indication: DIABETES MELLITUS
     Dosage: 7 U/ 1 DAY
  3. HUMULIN N [Suspect]
     Indication: DIABETES MELLITUS
     Dates: start: 19950101, end: 19960101
  4. HUMULIN R [Suspect]
     Indication: DIABETES MELLITUS
     Dates: start: 19950101, end: 19960101
  5. INSULIN [Suspect]
     Indication: DIABETES MELLITUS
     Dates: start: 19550101
  6. CARDIZEM CD [Concomitant]
  7. ASPIRIN [Concomitant]
  8. ZOCOR [Concomitant]
  9. HALCION [Concomitant]
  10. NORTRIPTYLINE HCL [Concomitant]
  11. NOVOLIN R [Concomitant]
  12. ISOSORBIDE [Concomitant]
  13. NOVOLOG [Concomitant]

REACTIONS (9)
  - BLINDNESS [None]
  - BLOOD GLUCOSE DECREASED [None]
  - HYPERHIDROSIS [None]
  - HYPOGLYCAEMIA [None]
  - HYPOGLYCAEMIA UNAWARENESS [None]
  - LOSS OF CONSCIOUSNESS [None]
  - MYOCARDIAL INFARCTION [None]
  - SCREAMING [None]
  - SHOCK HYPOGLYCAEMIC [None]
